FAERS Safety Report 9901706 (Version 3)
Quarter: 2014Q1

REPORT INFORMATION
  Report Type: Spontaneous
  Country: JP (occurrence: JP)
  Receive Date: 20140217
  Receipt Date: 20140327
  Transmission Date: 20141002
  Serious: Yes (Hospitalization, Other)
  Sender: FDA-Public Use
  Company Number: JP-GILEAD-2014-0094268

PATIENT
  Age: 34 Year
  Sex: Female

DRUGS (15)
  1. HEPSERA [Suspect]
     Indication: PRODUCT USED FOR UNKNOWN INDICATION
     Dosage: 10 UNKNOWN, QD
     Route: 048
     Dates: start: 20131225
  2. ZEFIX /01221401/ [Suspect]
     Indication: HEPATITIS B
     Dosage: 100MG TWICE PER DAY
     Route: 048
     Dates: start: 20131218, end: 20131225
  3. PREDONINE                          /00016201/ [Concomitant]
     Indication: HEPATITIS B
     Dosage: 1G PER DAY
     Route: 065
     Dates: start: 20131218, end: 20131220
  4. PREDONINE                          /00016201/ [Concomitant]
     Dosage: 30 MG, BID
     Route: 048
     Dates: start: 20131221, end: 20131221
  5. PREDONINE                          /00016201/ [Concomitant]
     Dosage: 50 MG, QD
     Route: 048
     Dates: start: 20131222, end: 20131222
  6. PREDONINE                          /00016201/ [Concomitant]
     Dosage: 40 MG, QD
     Route: 048
     Dates: start: 20131223, end: 20131223
  7. PREDONINE                          /00016201/ [Concomitant]
     Dosage: 40 MG, QD
     Route: 048
     Dates: start: 20131231
  8. PREDONINE                          /00016201/ [Concomitant]
     Dosage: 30 MG, QD
     Route: 048
     Dates: start: 20140108
  9. PREDONINE                          /00016201/ [Concomitant]
     Dosage: 20 MG, QD
     Route: 048
     Dates: start: 20140114
  10. PREDONINE                          /00016201/ [Concomitant]
     Dosage: 10 MG, QD
     Route: 048
     Dates: start: 20140124
  11. URSO                               /00465701/ [Concomitant]
     Indication: PRODUCT USED FOR UNKNOWN INDICATION
     Dosage: 200MG THREE TIMES PER DAY
     Route: 048
  12. PARIET [Concomitant]
     Indication: PRODUCT USED FOR UNKNOWN INDICATION
     Dosage: 10MG PER DAY
     Route: 048
  13. PARIET [Concomitant]
     Dosage: 10MG PER DAY
     Route: 048
  14. BONALON [Concomitant]
     Indication: PRODUCT USED FOR UNKNOWN INDICATION
     Route: 048
  15. BONALON [Concomitant]
     Route: 048

REACTIONS (3)
  - Platelet count decreased [Recovered/Resolved]
  - Arthralgia [Recovering/Resolving]
  - Folliculitis [Unknown]
